FAERS Safety Report 16987432 (Version 2)
Quarter: 2019Q4

REPORT INFORMATION
  Report Type: Report from Study
  Country: None (occurrence: US)
  Receive Date: 20191104
  Receipt Date: 20191125
  Transmission Date: 20200122
  Serious: Yes (Other)
  Sender: FDA-Public Use
  Company Number: US-ABBVIE-19K-163-2944193-00

PATIENT
  Sex: Female

DRUGS (2)
  1. HUMIRA [Suspect]
     Active Substance: ADALIMUMAB
     Indication: RHEUMATOID ARTHRITIS
     Route: 058
     Dates: start: 20181003, end: 20190717
  2. HUMIRA [Suspect]
     Active Substance: ADALIMUMAB
     Route: 058
     Dates: start: 20190927, end: 20190927

REACTIONS (10)
  - Joint stiffness [Unknown]
  - Pain of skin [Recovering/Resolving]
  - Autoimmune disorder [Recovering/Resolving]
  - Soft tissue inflammation [Not Recovered/Not Resolved]
  - Musculoskeletal discomfort [Unknown]
  - Skin lesion [Recovering/Resolving]
  - Erythema [Recovering/Resolving]
  - Localised infection [Recovering/Resolving]
  - Impaired healing [Not Recovered/Not Resolved]
  - Arthralgia [Unknown]

NARRATIVE: CASE EVENT DATE: 2019
